FAERS Safety Report 5814614-5 (Version None)
Quarter: 2008Q3

REPORT INFORMATION
  Report Type: 
  Country: None (occurrence: None)
  Receive Date: 20080718
  Receipt Date: 20071213
  Transmission Date: 20090109
  Serious: No
  Sender: FDA-Public Use
  Company Number: US-KINGPHARMUSA00001-K200701619

PATIENT

DRUGS (5)
  1. LEVOXYL [Suspect]
     Indication: HYPOTHYROIDISM
     Dosage: 88 MCG, QD
     Route: 048
     Dates: start: 20030101, end: 20060501
  2. SYNTHROID [Suspect]
     Indication: HYPOTHYROIDISM
     Dates: start: 20060501
  3. LANOXIN [Concomitant]
     Route: 048
  4. FLORINEF [Concomitant]
     Route: 048
  5. ATENOLOL [Concomitant]
     Route: 048

REACTIONS (9)
  - BURNING SENSATION [None]
  - HYPOAESTHESIA [None]
  - MUSCLE SPASMS [None]
  - MUSCULAR WEAKNESS [None]
  - NEUROPATHY PERIPHERAL [None]
  - OROPHARYNGEAL PAIN [None]
  - PAIN [None]
  - PARAESTHESIA [None]
  - THYROID MASS [None]
